FAERS Safety Report 5042246-8 (Version None)
Quarter: 2006Q2

REPORT INFORMATION
  Report Type: 
  Country: None (occurrence: None)
  Receive Date: 20060627
  Receipt Date: 20060612
  Transmission Date: 20061013
  Serious: Yes (Death)
  Sender: FDA-Public Use
  Company Number: 2006063538

PATIENT
  Age: 13 Year
  Sex: Female

DRUGS (5)
  1. VFEND [Suspect]
     Indication: ASPERGILLOSIS
     Dosage: 400 MG (DAILY), INTRAVENOUS
     Route: 042
     Dates: start: 20060418
  2. PREDNISOLONE [Suspect]
     Indication: DRUG USE FOR UNKNOWN INDICATION
     Dosage: 60 MG (DAILY), INTRAVENOUS
     Route: 042
     Dates: start: 20060418
  3. ADONA (CARBAZOCHROME SODIUM SULFONATE) [Suspect]
     Indication: DRUG USE FOR UNKNOWN INDICATION
     Dosage: 30 MG (DAILY), INTRAVENOUS
     Route: 042
     Dates: start: 20060418
  4. CARBENIN (BETAMIPRON, PANIPENEM) [Suspect]
     Indication: DRUG USE FOR UNKNOWN INDICATION
     Dosage: 250 MG (DAILY), INTRAVENOUS
     Route: 042
     Dates: start: 20060418
  5. LASIX [Suspect]
     Indication: DRUG USE FOR UNKNOWN INDICATION
     Dosage: 3 MG (DAILY), INTRAVENOUS
     Route: 042
     Dates: start: 20060418

REACTIONS (1)
  - LIVER FUNCTION TEST ABNORMAL [None]
